FAERS Safety Report 23703980 (Version 2)
Quarter: 2024Q2

REPORT INFORMATION
  Report Type: Spontaneous
  Country: PT (occurrence: PT)
  Receive Date: 20240403
  Receipt Date: 20240408
  Transmission Date: 20240715
  Serious: Yes (Hospitalization, Other)
  Sender: FDA-Public Use
  Company Number: PT-BAYER-2024A047960

PATIENT
  Age: 78 Year
  Sex: Male

DRUGS (5)
  1. XARELTO [Suspect]
     Active Substance: RIVAROXABAN
     Indication: Product used for unknown indication
     Route: 048
  2. METFORMIN [Concomitant]
     Active Substance: METFORMIN HYDROCHLORIDE
  3. VILDAGLIPTIN [Concomitant]
     Active Substance: VILDAGLIPTIN
  4. OLMESARTAN HIDROCLOROTIAZIDA [Concomitant]
  5. INDAPAMIDE [Concomitant]
     Active Substance: INDAPAMIDE

REACTIONS (14)
  - Acute myocardial infarction [Unknown]
  - Degenerative aortic valve disease [Unknown]
  - Atrial fibrillation [Unknown]
  - Gastrointestinal erosion [Unknown]
  - Gastrointestinal angiodysplasia [Unknown]
  - Anaemia [Unknown]
  - Heart rate increased [Unknown]
  - Arrhythmia [Unknown]
  - Chest pain [Unknown]
  - Dyspnoea exertional [Unknown]
  - Sputum purulent [Unknown]
  - Heart sounds abnormal [Unknown]
  - Heyde^s syndrome [Unknown]
  - Tachycardia [Unknown]

NARRATIVE: CASE EVENT DATE: 20180404
